FAERS Safety Report 24662048 (Version 2)
Quarter: 2024Q4

REPORT INFORMATION
  Report Type: Report from Study
  Country: US (occurrence: US)
  Receive Date: 20241125
  Receipt Date: 20241209
  Transmission Date: 20250114
  Serious: Yes (Other)
  Sender: ABBVIE
  Company Number: US-ABBVIE-6012618

PATIENT
  Age: 47 Year
  Sex: Female
  Weight: 59.874 kg

DRUGS (1)
  1. QULIPTA [Suspect]
     Active Substance: ATOGEPANT
     Indication: Migraine
     Route: 048
     Dates: start: 2022, end: 202411

REACTIONS (1)
  - Venous operation [Recovered/Resolved]

NARRATIVE: CASE EVENT DATE: 20241118
